FAERS Safety Report 11069290 (Version 2)
Quarter: 2015Q2

REPORT INFORMATION
  Report Type: Spontaneous
  Country: US (occurrence: US)
  Receive Date: 20150427
  Receipt Date: 20150501
  Transmission Date: 20150821
  Serious: No
  Sender: FDA-Public Use
  Company Number: US-ASTRAZENECA-2015SE38765

PATIENT
  Sex: Male

DRUGS (1)
  1. NEXIUM 24HR [Suspect]
     Active Substance: ESOMEPRAZOLE MAGNESIUM
     Route: 048

REACTIONS (3)
  - Local swelling [Unknown]
  - Neck pain [Unknown]
  - Joint swelling [Not Recovered/Not Resolved]
